FAERS Safety Report 8819715 (Version 1)
Quarter: 2012Q4

REPORT INFORMATION
  Report Type: 
  Country: US (occurrence: US)
  Receive Date: 20121001
  Receipt Date: 20121001
  Transmission Date: 20130627
  Serious: Yes (Death, Hospitalization)
  Sender: FDA-Public Use
  Company Number: US-ROCHE-1129709

PATIENT
  Sex: Female

DRUGS (3)
  1. HERCEPTIN [Suspect]
     Indication: BREAST CANCER
     Dosage: Loading Dose
     Route: 065
     Dates: start: 19990105
  2. HERCEPTIN [Suspect]
     Indication: METASTASES TO BONE
     Dosage: maintenance Dose
     Route: 065
  3. HERCEPTIN [Suspect]
     Indication: METASTASES TO LUNG

REACTIONS (2)
  - Death [Fatal]
  - Malaise [Unknown]
